FAERS Safety Report 8768308 (Version 1)
Quarter: 2012Q4

REPORT INFORMATION
  Report Type: 
  Country: US (occurrence: US)
  Receive Date: 20120904
  Receipt Date: 20120904
  Transmission Date: 20130627
  Serious: No
  Sender: FDA-Public Use
  Company Number: US-AMGEN-USASP2012053444

PATIENT
  Age: 46 Year
  Sex: Female

DRUGS (4)
  1. ENBREL [Suspect]
     Indication: PSORIASIS
     Dosage: 25 mg, 2 times/wk
     Route: 058
     Dates: start: 20120401, end: 201207
  2. ENBREL [Suspect]
     Indication: PSORIATIC ARTHROPATHY
  3. METHOTREXATE [Concomitant]
     Dosage: 2.5 mg, qwk
     Route: 048
     Dates: start: 2010
  4. METHOTREXATE [Concomitant]
     Dosage: 25 mg, qwk
     Route: 048
     Dates: start: 2010

REACTIONS (1)
  - Psoriasis [Not Recovered/Not Resolved]
